FAERS Safety Report 9963256 (Version 1)
Quarter: 2014Q1

REPORT INFORMATION
  Report Type: Report from Study
  Country: US (occurrence: US)
  Receive Date: 20140305
  Receipt Date: 20140305
  Transmission Date: 20141002
  Serious: No
  Sender: FDA-Public Use
  Company Number: US-ABBVIE-13P-163-1119407-00

PATIENT
  Sex: Female
  Weight: 59.02 kg

DRUGS (18)
  1. HUMIRA [Suspect]
     Indication: COLITIS ULCERATIVE
     Route: 058
     Dates: start: 2011, end: 2011
  2. HUMIRA [Suspect]
  3. HUMIRA [Suspect]
     Route: 058
     Dates: end: 2012
  4. HUMIRA [Suspect]
     Route: 058
     Dates: start: 2012
  5. VITAMIN B12 [Concomitant]
     Indication: VITAMIN SUPPLEMENTATION
  6. VITAMIN D3 [Concomitant]
     Indication: VITAMIN SUPPLEMENTATION
  7. VITAMIN D [Concomitant]
     Indication: VITAMIN D DECREASED
  8. MESALAMINE [Concomitant]
     Indication: COLITIS ULCERATIVE
  9. AZATHIOPRINE [Concomitant]
     Indication: COLITIS ULCERATIVE
  10. DOXEPIN [Concomitant]
     Indication: COLITIS ULCERATIVE
  11. SYNTHROID [Concomitant]
     Indication: HYPOTHYROIDISM
  12. CYTOMEL [Concomitant]
     Indication: HYPOTHYROIDISM
  13. ELMIRON [Concomitant]
     Indication: CYSTITIS INTERSTITIAL
  14. INTRINSIC B FOLATE [Concomitant]
     Indication: VITAMIN SUPPLEMENTATION
  15. TRILEPTAL [Concomitant]
     Indication: MIGRAINE
  16. TRAMADOL [Concomitant]
     Indication: PAIN
  17. BENADRYL [Concomitant]
     Indication: RASH
  18. PRILOSEC [Concomitant]
     Indication: GASTROOESOPHAGEAL REFLUX PROPHYLAXIS

REACTIONS (7)
  - Stress [Unknown]
  - Injection site bruising [Not Recovered/Not Resolved]
  - Injection site haemorrhage [Not Recovered/Not Resolved]
  - Injection site pain [Not Recovered/Not Resolved]
  - Colitis ulcerative [Recovered/Resolved]
  - Drug ineffective [Not Recovered/Not Resolved]
  - Hypertension [Recovered/Resolved]
